FAERS Safety Report 10154223 (Version 2)
Quarter: 2014Q2

REPORT INFORMATION
  Report Type: Spontaneous
  Country: US (occurrence: US)
  Receive Date: 20140506
  Receipt Date: 20140609
  Transmission Date: 20141212
  Serious: Yes (Other)
  Sender: FDA-Public Use
  Company Number: US-PFIZER INC-2014119795

PATIENT
  Sex: Male

DRUGS (2)
  1. TOVIAZ [Suspect]
     Dosage: 1 MG, DAILY
  2. TOVIAZ [Suspect]
     Dosage: 1 MG, ALTERNATE DAY

REACTIONS (2)
  - Urinary retention [Unknown]
  - Hypohidrosis [Unknown]
